FAERS Safety Report 9517352 (Version 2)
Quarter: 2014Q1

REPORT INFORMATION
  Report Type: Spontaneous
  Country: US (occurrence: None)
  Receive Date: 20130305
  Receipt Date: 20140306
  Transmission Date: 20141002
  Serious: Yes (Other)
  Sender: FDA-Public Use
  Company Number: 163-21880-12122180

PATIENT
  Age: 87 Year
  Sex: Male

DRUGS (2)
  1. REVLIMID [Suspect]
     Indication: CHRONIC MYELOID LEUKAEMIA
     Dosage: DISCONTINUED; 21 IN 28 D
     Route: 048
     Dates: start: 20121127
  2. TRAMADOL [Concomitant]

REACTIONS (13)
  - Anaemia [None]
  - Nausea [None]
  - Pain in extremity [None]
  - Pruritus [None]
  - Constipation [None]
  - Contusion [None]
  - Fatigue [None]
  - Renal impairment [None]
  - Rash [None]
  - Aphagia [None]
  - White blood cell count decreased [None]
  - Skin exfoliation [None]
  - Weight decreased [None]
